FAERS Safety Report 6608111-7 (Version None)
Quarter: 2010Q1

REPORT INFORMATION
  Report Type: 
  Country: None (occurrence: None)
  Receive Date: 20100226
  Receipt Date: 20100226
  Transmission Date: 20100710
  Serious: No
  Sender: FDA-Public Use
  Company Number: None

PATIENT
  Age: 38 Year
  Sex: Male
  Weight: 102.0593 kg

DRUGS (11)
  1. BACTRIM DS [Suspect]
     Dosage: 1 TAB BID PO
     Route: 048
     Dates: start: 20080918, end: 20080924
  2. MULTI-VITAMINS [Concomitant]
  3. TOPIRAMATE [Concomitant]
  4. GABAPENTIN [Concomitant]
  5. ACETAMINOPHEN [Concomitant]
  6. IBUPROFEN [Concomitant]
  7. BENZOYL PEROXIDE [Concomitant]
  8. VENLAFAXINE [Concomitant]
  9. DIAZEPAM [Concomitant]
  10. DOXEPIN HCL [Concomitant]
  11. ZIPRASIDONE HCL [Concomitant]

REACTIONS (3)
  - DRUG ERUPTION [None]
  - GENITAL LESION [None]
  - PENILE EXFOLIATION [None]
